FAERS Safety Report 10108903 (Version 1)
Quarter: 2014Q2

REPORT INFORMATION
  Report Type: Spontaneous
  Country: US (occurrence: US)
  Receive Date: 20140425
  Receipt Date: 20140425
  Transmission Date: 20141212
  Serious: Yes (Hospitalization, Other)
  Sender: FDA-Public Use
  Company Number: US-AMGEN INC.-USASP2014029541

PATIENT
  Age: 81 Year
  Sex: Female

DRUGS (2)
  1. ENBREL [Suspect]
     Indication: RHEUMATOID ARTHRITIS
     Dosage: 25 MG, 2 TIMES/WK
     Route: 065
     Dates: start: 1999
  2. METHOTREXATE [Concomitant]
     Dosage: UNK
     Dates: end: 201204

REACTIONS (15)
  - Road traffic accident [Unknown]
  - Cardiac valve disease [Not Recovered/Not Resolved]
  - Cerebrovascular accident [Unknown]
  - Pruritus [Unknown]
  - Muscular weakness [Unknown]
  - Blood pressure increased [Unknown]
  - Hyperproteinaemia [Unknown]
  - Back pain [Unknown]
  - Arthralgia [Not Recovered/Not Resolved]
  - Skin reaction [Unknown]
  - Lung disorder [Unknown]
  - Blood test abnormal [Unknown]
  - Injection site rash [Not Recovered/Not Resolved]
  - Injection site bruising [Not Recovered/Not Resolved]
  - Injection site pain [Unknown]
